FAERS Safety Report 12633025 (Version 1)
Quarter: 2016Q3

REPORT INFORMATION
  Report Type: Spontaneous
  Country: US (occurrence: None)
  Receive Date: 20160808
  Receipt Date: 20160808
  Transmission Date: 20161109
  Serious: No
  Sender: FDA-Public Use
  Company Number: None

PATIENT
  Age: 34 Year
  Sex: Male
  Weight: 122.47 kg

DRUGS (1)
  1. INVEGA [Suspect]
     Active Substance: PALIPERIDONE
     Indication: MENTAL DISORDER
     Dosage: 0NCE A DAY
     Route: 048
     Dates: start: 20070711, end: 20070804

REACTIONS (2)
  - Apnoea [None]
  - Productive cough [None]

NARRATIVE: CASE EVENT DATE: 20070725
